FAERS Safety Report 14255300 (Version 2)
Quarter: 2021Q1

REPORT INFORMATION
  Report Type: Report from Study
  Country: FR (occurrence: FR)
  Receive Date: 20171206
  Receipt Date: 20210322
  Transmission Date: 20210419
  Serious: Yes (Hospitalization)
  Sender: FDA-Public Use
  Company Number: FR-ROCHE-1783493

PATIENT
  Age: 60 Year
  Sex: Male
  Weight: 67 kg

DRUGS (40)
  1. OCRELIZUMAB. [Suspect]
     Active Substance: OCRELIZUMAB
     Indication: PRIMARY PROGRESSIVE MULTIPLE SCLEROSIS
     Dosage: FREQUENCY AS PER PROTOCOL PATIENT RECEIVED DUAL INFUSION OF BLINDED INTRAVENOUS OCRELIZUMAB ON DAY 1
     Route: 042
     Dates: start: 20120927
  2. AERIUS [Concomitant]
     Indication: PREMEDICATION
     Dates: start: 20150210
  3. AERIUS [Concomitant]
     Dates: start: 20140731
  4. PARACETAMOL [Concomitant]
     Active Substance: ACETAMINOPHEN
     Indication: INFECTION
     Dates: start: 20130402, end: 20130410
  5. PARACETAMOL [Concomitant]
     Active Substance: ACETAMINOPHEN
     Dosage: INDICATION: PROPHYLAXIS FEVER
     Dates: start: 20160621, end: 20160712
  6. XYZALL [Concomitant]
     Active Substance: LEVOCETIRIZINE DIHYDROCHLORIDE
     Indication: PREMEDICATION
     Dosage: ALSO RECEIVED ON 21/JUL/2015, 22/DEC/2015, 05/JAN/2016, 14/JUN/2016 AND 22/NOV/2016.
     Dates: start: 20150707
  7. CARDENSIEL [Concomitant]
     Active Substance: BISOPROLOL FUMARATE
     Indication: HYPERTENSION
     Dates: start: 20140207, end: 20140225
  8. CIFLOX (FRANCE) [Concomitant]
     Active Substance: CIPROFLOXACIN
     Indication: URINARY TRACT INFECTION
     Dates: start: 20130506, end: 20130521
  9. CEFIXIME. [Concomitant]
     Active Substance: CEFIXIME
     Indication: URINARY TRACT INFECTION
     Route: 048
     Dates: start: 20160212, end: 20160219
  10. AERIUS [Concomitant]
     Dates: start: 20140814
  11. APROVEL [Concomitant]
     Active Substance: IRBESARTAN
     Indication: HYPERTENSION
     Dates: start: 20131106, end: 20131114
  12. HELICIDINE [Concomitant]
     Active Substance: ESCARGOT
     Indication: TRACHEITIS
     Dates: start: 20140721, end: 20140726
  13. ORELOX [Concomitant]
     Active Substance: CEFPODOXIME
     Indication: TRACHEITIS
     Dates: start: 20140721, end: 20140726
  14. ZANIDIP [Concomitant]
     Active Substance: LERCANIDIPINE HYDROCHLORIDE
     Dates: start: 20170605, end: 20170625
  15. BACTRIM [Concomitant]
     Active Substance: SULFAMETHOXAZOLE\TRIMETHOPRIM
     Indication: URINARY TRACT INFECTION
     Route: 048
     Dates: start: 20160310, end: 20160320
  16. MONURIL [Concomitant]
     Active Substance: FOSFOMYCIN TROMETHAMINE
     Indication: URINARY TRACT INFECTION
     Dates: start: 20150623, end: 20150623
  17. ZANIDIP [Concomitant]
     Active Substance: LERCANIDIPINE HYDROCHLORIDE
     Dates: start: 20170626, end: 20171001
  18. CETIRIZINE [Concomitant]
     Active Substance: CETIRIZINE HYDROCHLORIDE
     Dosage: START TIME: 11:27, STOP TIME: 11:28
     Dates: start: 20171031
  19. LEVOCETIRIZINE [Concomitant]
     Active Substance: LEVOCETIRIZINE
     Dosage: START TIME: 10:32, STOP TIME: 10:32
     Dates: start: 20170509
  20. OCRELIZUMAB. [Suspect]
     Active Substance: OCRELIZUMAB
     Route: 042
     Dates: start: 20161122
  21. METHYLPREDNISOLONE. [Concomitant]
     Active Substance: METHYLPREDNISOLONE
     Indication: PREMEDICATION
     Dosage: ALSO RECEIVED ON 11/OCT/2012, 14/MAR/2013, 28/MAR/2013, 16/SEP/2013, 01/OCT/2013, 21/FEB/2014, 07/MA
     Dates: start: 20120927
  22. OCRELIZUMAB. [Suspect]
     Active Substance: OCRELIZUMAB
     Indication: PRIMARY PROGRESSIVE MULTIPLE SCLEROSIS
     Dosage: OPEN LABEL. FREQUENCY AS PER PROTOCOL. ALSO RECEIVED ON 05/JAN/2016, 14/JUN/2016, 22/NOV/2016, 09/MA
     Route: 042
     Dates: start: 20151222
  23. POLARAMINE [Concomitant]
     Active Substance: DEXCHLORPHENIRAMINE MALEATE
     Indication: PREMEDICATION
     Dosage: ALSO RECEIVED ON 11/OCT/2012, 14/MAR/2013, 28/MAR/2013, 16/SEP/2013, 01/OCT/2013, 21/FEB/2014 AND 07
     Dates: start: 20120927
  24. AMOXICILLINE [Concomitant]
     Active Substance: AMOXICILLIN
     Indication: URINARY TRACT INFECTION
     Dates: start: 20130402, end: 20130410
  25. CELESTENE [Concomitant]
     Indication: TRACHEITIS
     Dates: start: 20140721, end: 20140726
  26. IBUPROFENE [Concomitant]
     Active Substance: IBUPROFEN
     Indication: INFECTION
     Dates: start: 20130129, end: 20130130
  27. ZANIDIP [Concomitant]
     Active Substance: LERCANIDIPINE HYDROCHLORIDE
     Indication: HYPERTENSION
     Dates: start: 20130110, end: 20131120
  28. CEFIXIME. [Concomitant]
     Active Substance: CEFIXIME
     Dates: start: 20160301, end: 20160320
  29. PROTELOS [Concomitant]
     Active Substance: STRONTIUM RANELATE
     Dates: start: 20161024, end: 20170124
  30. PARACETAMOL [Concomitant]
     Active Substance: ACETAMINOPHEN
     Indication: PROPHYLAXIS
     Dates: start: 20130129, end: 20130130
  31. ARNICA [Concomitant]
     Active Substance: ARNICA MONTANA FLOWER
     Indication: LIGAMENT SPRAIN
     Dates: start: 20121002, end: 20121007
  32. ZANIDIP [Concomitant]
     Active Substance: LERCANIDIPINE HYDROCHLORIDE
     Dates: start: 20131121, end: 20170604
  33. LOVENOX [Concomitant]
     Active Substance: ENOXAPARIN SODIUM
     Indication: FRACTURE
     Dates: start: 20161019, end: 20170109
  34. AERIUS [Concomitant]
     Dates: start: 20150127
  35. PARACETAMOL [Concomitant]
     Active Substance: ACETAMINOPHEN
     Indication: PREMEDICATION
     Dosage: ALSO RECEIVED ON 11/OCT/2012, 14/MAR/2013, 28/MAR/2013, 16/SEP/2013, 01/OCT/2013, 21/FEB/2014, 07/MA
     Dates: start: 20120927
  36. AUGMENTIN [Concomitant]
     Active Substance: AMOXICILLIN\CLAVULANATE POTASSIUM
     Indication: INFECTION
     Dates: start: 20130127, end: 20130131
  37. FAMPYRA [Concomitant]
     Active Substance: DALFAMPRIDINE
     Dosage: INDICATION: WALK TROUBLES
     Dates: start: 20130601, end: 20160630
  38. NATECAL [Concomitant]
     Active Substance: CALCIUM CARBONATE\CHOLECALCIFEROL
     Indication: OSTEOPOROSIS PROPHYLAXIS
     Dates: start: 20161024
  39. PARACETAMOL [Concomitant]
     Active Substance: ACETAMINOPHEN
     Indication: URINARY TRACT INFECTION
     Dosage: INDICATION: RIB CRACKED
     Dates: start: 201403, end: 201405
  40. DOLIPRANE [Concomitant]
     Active Substance: ACETAMINOPHEN
     Indication: PREMEDICATION
     Dates: start: 20161122

REACTIONS (1)
  - Pyelonephritis [Recovered/Resolved]

NARRATIVE: CASE EVENT DATE: 20160619
